FAERS Safety Report 9283759 (Version 3)
Quarter: 2013Q4

REPORT INFORMATION
  Report Type: Spontaneous
  Country: US (occurrence: US)
  Receive Date: 20130510
  Receipt Date: 20131126
  Transmission Date: 20140711
  Serious: Yes (Death, Hospitalization)
  Sender: FDA-Public Use
  Company Number: US-B.I. PHARMACEUTICALS,INC./RIDGEFIELD-2013-BI-13167BP

PATIENT
  Sex: Female
  Weight: 54.43 kg

DRUGS (9)
  1. PRADAXA [Suspect]
     Indication: ATRIAL FIBRILLATION
     Dates: start: 20110315, end: 20111101
  2. CALCIUM + D [Concomitant]
     Dates: start: 2005, end: 2011
  3. DIGOXIN [Concomitant]
     Dates: start: 2005, end: 2011
  4. FUROSEMIDE [Concomitant]
     Dates: start: 2005, end: 2011
  5. METFORMIN [Concomitant]
     Dates: start: 2005, end: 2011
  6. SIMVASTATIN [Concomitant]
     Dates: start: 2005, end: 2011
  7. POTASSIUM CLER [Concomitant]
     Dates: start: 2005, end: 2011
  8. FOLBEE [Concomitant]
     Dates: start: 2005, end: 2011
  9. PANTOPRAZOLE [Concomitant]

REACTIONS (3)
  - Cerebral haemorrhage [Fatal]
  - Gastrointestinal haemorrhage [Unknown]
  - Myocardial infarction [Unknown]
